FAERS Safety Report 8486253 (Version 3)
Quarter: 2012Q4

REPORT INFORMATION
  Report Type: 
  Country: IE (occurrence: IE)
  Receive Date: 20120402
  Receipt Date: 20120926
  Transmission Date: 20130627
  Serious: Yes (Hospitalization)
  Sender: FDA-Public Use
  Company Number: IE-US-EMD SERONO, INC.-7122129

PATIENT
  Age: 23 None
  Sex: Male

DRUGS (2)
  1. REBIF [Suspect]
     Indication: RELAPSING-REMITTING MULTIPLE SCLEROSIS
     Route: 058
     Dates: start: 20111202
  2. LYRICA [Concomitant]
     Indication: NEURALGIA

REACTIONS (6)
  - Balance disorder [Not Recovered/Not Resolved]
  - Multiple sclerosis [Recovering/Resolving]
  - Bladder pain [Unknown]
  - Hypoaesthesia [Not Recovered/Not Resolved]
  - Injection site erythema [Unknown]
  - Wrong technique in drug usage process [Unknown]
